FAERS Safety Report 24103272 (Version 1)
Quarter: 2024Q3

REPORT INFORMATION
  Report Type: Report from Study
  Country: US (occurrence: US)
  Receive Date: 20240717
  Receipt Date: 20240717
  Transmission Date: 20241016
  Serious: Yes (Other)
  Sender: BIOVITRUM
  Company Number: US-BIOVITRUM-2024-US-005101

PATIENT
  Age: 80 Year
  Sex: Female

DRUGS (2)
  1. KINERET [Suspect]
     Active Substance: ANAKINRA
     Indication: Rheumatoid arthritis
     Dosage: QF
     Route: 058
  2. KINERET [Suspect]
     Active Substance: ANAKINRA
     Dosage: ONCE DAILY (QD)
     Route: 058
     Dates: start: 20240625

REACTIONS (6)
  - Osteomyelitis [Unknown]
  - Rheumatoid arthritis [Not Recovered/Not Resolved]
  - Intentional dose omission [Unknown]
  - Arthritis infective [Unknown]
  - Dizziness [Unknown]
  - Drug ineffective [Unknown]
